FAERS Safety Report 8326335-8 (Version None)
Quarter: 2012Q2

REPORT INFORMATION
  Report Type: 
  Country: None (occurrence: None)
  Receive Date: 20120501
  Receipt Date: 20120420
  Transmission Date: 20120825
  Serious: Yes (Hospitalization, Other)
  Sender: FDA-Public Use
  Company Number: US-ELI_LILLY_AND_COMPANY-US201201006933

PATIENT
  Sex: Female
  Weight: 78.1 kg

DRUGS (13)
  1. KEPPRA [Concomitant]
     Dosage: 1000 MG, BID
     Route: 048
     Dates: start: 20110501
  2. MORPHINE [Concomitant]
     Dosage: 30 MG, BID
     Route: 048
     Dates: start: 20090101
  3. LAMICTAL [Concomitant]
     Dosage: 100 MG, BID
     Route: 048
     Dates: start: 20110611
  4. HEPARIN [Concomitant]
     Dosage: UNK
     Dates: start: 20111107
  5. TRILAFON [Concomitant]
     Indication: DEPRESSION
     Dosage: 8 MG, BID
     Route: 048
     Dates: start: 20000101
  6. ANTIHISTAMINES [Concomitant]
     Route: 042
  7. FLEXERIL [Concomitant]
     Dosage: 20 MG, BID
     Route: 048
     Dates: start: 20050101
  8. CALCIUM + VITAMIN D [Concomitant]
  9. HYDROMORPHONE HCL [Concomitant]
     Dosage: UNK
     Dates: start: 20111108, end: 20111109
  10. PROZAC [Suspect]
     Dosage: 60 MG, QD
     Route: 048
     Dates: start: 20000101
  11. INDERAL [Concomitant]
     Dosage: 20 MG, TID
     Route: 048
     Dates: start: 19910101
  12. WELLBUTRIN [Concomitant]
  13. VITAMINS NOS [Concomitant]

REACTIONS (5)
  - ANAPHYLACTOID REACTION [None]
  - RENAL FAILURE [None]
  - HYPONATRAEMIA [None]
  - HYPERSENSITIVITY [None]
  - SKIN BACTERIAL INFECTION [None]
